FAERS Safety Report 5214639-7 (Version None)
Quarter: 2007Q1

REPORT INFORMATION
  Report Type: 
  Country: None (occurrence: None)
  Receive Date: 20061107
  Receipt Date: 20060707
  Transmission Date: 20070707
  Serious: Yes (Other)
  Sender: FDA-Public Use
  Company Number: 200614470BWH

PATIENT
  Age: 65 Year
  Sex: Male
  Weight: 72.5755 kg

DRUGS (6)
  1. LEVITRA [Suspect]
     Indication: ERECTILE DYSFUNCTION
     Dosage: ORAL
     Route: 048
     Dates: start: 20030101
  2. LIPITOR [Suspect]
     Indication: BLOOD CHOLESTEROL INCREASED
     Dosage: 20 MG, TOTAL DAILY
  3. VIAGRA [Suspect]
     Indication: ERECTILE DYSFUNCTION
     Dosage: 50 MG, TOTAL DAILY
     Dates: start: 20030101
  4. NAPROXEN [Concomitant]
  5. ASPIRIN [Concomitant]
  6. CRESTOR [Concomitant]

REACTIONS (8)
  - ANORGASMIA [None]
  - EJACULATION DELAYED [None]
  - EJACULATION FAILURE [None]
  - ERECTION INCREASED [None]
  - MALAISE [None]
  - NERVOUSNESS [None]
  - OPTIC NEUROPATHY [None]
  - ORGASM ABNORMAL [None]
